FAERS Safety Report 16634439 (Version 2)
Quarter: 2019Q3

REPORT INFORMATION
  Report Type: Spontaneous
  Country: US (occurrence: US)
  Receive Date: 20190726
  Receipt Date: 20190730
  Transmission Date: 20191004
  Serious: No
  Sender: FDA-Public Use
  Company Number: US-IPSEN BIOPHARMACEUTICALS, INC.-2019-13084

PATIENT
  Age: 28 Year
  Sex: Female
  Weight: 92.7 kg

DRUGS (2)
  1. DYSPORT [Suspect]
     Active Substance: ABOBOTULINUMTOXINA
     Indication: SKIN WRINKLING
  2. DYSPORT [Suspect]
     Active Substance: ABOBOTULINUMTOXINA
     Indication: SKIN WRINKLING
     Dosage: TOTAL 15 UNITS [PROCERUS 5 UNITS, CORRUGATOR 10 UNITS (2.5 X 2 SIDES OF LEFT AND 2.5 X 2 SIDES OF RI
     Route: 058
     Dates: start: 20190712, end: 20190712

REACTIONS (3)
  - Incorrect route of product administration [Unknown]
  - Muscle contractions involuntary [Recovered/Resolved]
  - Myalgia [Unknown]

NARRATIVE: CASE EVENT DATE: 20190720
